FAERS Safety Report 10156787 (Version 1)
Quarter: 2014Q2

REPORT INFORMATION
  Report Type: Spontaneous
  Country: DE (occurrence: None)
  Receive Date: 20140505
  Receipt Date: 20140505
  Transmission Date: 20141212
  Serious: Yes (Other)
  Sender: FDA-Public Use
  Company Number: 2014DEPDE00073

PATIENT
  Age: 60 Year
  Sex: Female

DRUGS (1)
  1. DEPOCYT(E) (CYTARABINE) LIPOSOME INJECTABLE SUSPENSION [Suspect]
     Indication: METASTASES TO MENINGES
     Route: 037

REACTIONS (3)
  - Restlessness [None]
  - Speech disorder [None]
  - Disorientation [None]
